FAERS Safety Report 4805471-4 (Version None)
Quarter: 2005Q4

REPORT INFORMATION
  Report Type: 
  Country: None (occurrence: None)
  Receive Date: 20051018
  Receipt Date: 20051003
  Transmission Date: 20060501
  Serious: Yes (Hospitalization)
  Sender: FDA-Public Use
  Company Number: 218447

PATIENT
  Age: 67 Year
  Sex: Male
  Weight: 94 kg

DRUGS (3)
  1. AVASTIN (BEVACIZUMAB) PWDR + SOLVENT, INFUSION SOLN, 100MG [Suspect]
     Indication: COLORECTAL CANCER METASTATIC
     Dosage: 700 MG, Q3W, INTRAVENOUS
     Route: 042
  2. CAPECITABINE (CAPECITABINE) [Suspect]
     Indication: COLORECTAL CANCER METASTATIC
     Dosage: 4000 MG, QD, ORAL
     Route: 048
  3. MITOMYCIN [Suspect]
     Indication: COLORECTAL CANCER METASTATIC
     Dosage: 7 MG/M2, 1/MONTH

REACTIONS (1)
  - GASTROINTESTINAL INFLAMMATION [None]
